FAERS Safety Report 8989180 (Version 1)
Quarter: 2012Q4

REPORT INFORMATION
  Report Type: 
  Country: US (occurrence: None)
  Receive Date: 20121219
  Receipt Date: 20121219
  Transmission Date: 20130627
  Serious: Yes (Other)
  Sender: FDA-Public Use
  Company Number: 2012120063

PATIENT
  Age: 44 Year
  Sex: Female

DRUGS (2)
  1. SOMA [Suspect]
  2. METAXALONE [Suspect]

REACTIONS (1)
  - Cerebrovascular accident [None]
